FAERS Safety Report 6431439-0 (Version None)
Quarter: 2009Q4

REPORT INFORMATION
  Report Type: 
  Country: None (occurrence: None)
  Receive Date: 20091106
  Receipt Date: 20091029
  Transmission Date: 20100525
  Serious: Yes (Other)
  Sender: FDA-Public Use
  Company Number: PHHY2009CR47041

PATIENT
  Age: 76 Year
  Sex: Female

DRUGS (2)
  1. EXELON [Suspect]
     Route: 048
  2. VICTAN [Concomitant]
     Dosage: 2 MG ONE TABLET PER DAY

REACTIONS (6)
  - DISTURBANCE IN ATTENTION [None]
  - ENOPHTHALMOS [None]
  - EYES SUNKEN [None]
  - GAIT DISTURBANCE [None]
  - PALLOR [None]
  - PERIPHERAL COLDNESS [None]
